FAERS Safety Report 21684170 (Version 2)
Quarter: 2022Q4

REPORT INFORMATION
  Report Type: Report from Study
  Country: CL (occurrence: CL)
  Receive Date: 20221205
  Receipt Date: 20221209
  Transmission Date: 20230113
  Serious: Yes (Hospitalization, Other)
  Sender: FDA-Public Use
  Company Number: CL-BRISTOL-MYERS SQUIBB COMPANY-2022-145985

PATIENT
  Age: 68 Year
  Sex: Female

DRUGS (1)
  1. ORENCIA [Suspect]
     Active Substance: ABATACEPT
     Indication: Rheumatoid arthritis
     Dosage: FREQUENCY: 7, 4 UNITS
     Route: 058
     Dates: end: 202210

REACTIONS (2)
  - Bronchitis [Not Recovered/Not Resolved]
  - Thrombosis [Recovered/Resolved]

NARRATIVE: CASE EVENT DATE: 20221001
